FAERS Safety Report 7710534-X (Version None)
Quarter: 2011Q3

REPORT INFORMATION
  Report Type: 
  Country: None (occurrence: None)
  Receive Date: 20110823
  Receipt Date: 20110727
  Transmission Date: 20111222
  Serious: Yes (Hospitalization)
  Sender: FDA-Public Use
  Company Number: 2011PROUSA00518

PATIENT
  Age: 85 Year
  Sex: Male

DRUGS (2)
  1. PROVENGE [Suspect]
     Indication: PROSTATE CANCER METASTATIC
     Dosage: 250 ML, SINGLE, INTRAVENOUS
     Route: 042
     Dates: start: 20110708, end: 20110708
  2. BETAPACE [Concomitant]

REACTIONS (14)
  - CHEST PAIN [None]
  - DIARRHOEA [None]
  - CORONARY ARTERY DISEASE [None]
  - BRADYCARDIA [None]
  - DIZZINESS [None]
  - PYREXIA [None]
  - MYOCARDIAL INFARCTION [None]
  - HYPOTENSION [None]
  - VOMITING [None]
  - NEUROPATHY PERIPHERAL [None]
  - CHILLS [None]
  - DYSURIA [None]
  - MALAISE [None]
  - SEPSIS [None]
